FAERS Safety Report 5827871-6 (Version None)
Quarter: 2008Q3

REPORT INFORMATION
  Report Type: 
  Country: None (occurrence: None)
  Receive Date: 20080730
  Receipt Date: 20080721
  Transmission Date: 20090109
  Serious: Yes (Other)
  Sender: FDA-Public Use
  Company Number: US-PFIZER INC-2008040723

PATIENT
  Sex: Male

DRUGS (2)
  1. CELEBREX [Suspect]
     Indication: PAIN MANAGEMENT
     Dosage: TEXT:200 MG + 400 MG
     Route: 048
  2. CELEBREX [Suspect]
     Indication: BACK PAIN

REACTIONS (1)
  - CARDIOVASCULAR DISORDER [None]
